FAERS Safety Report 11182582 (Version 1)
Quarter: 2015Q2

REPORT INFORMATION
  Report Type: Spontaneous
  Country: US (occurrence: US)
  Receive Date: 20150611
  Receipt Date: 20150611
  Transmission Date: 20150821
  Serious: No
  Sender: FDA-Public Use
  Company Number: US-SHIRE-US201505715

PATIENT
  Sex: Female
  Weight: 68.93 kg

DRUGS (2)
  1. CINRYZE [Suspect]
     Active Substance: HUMAN C1-ESTERASE INHIBITOR
     Indication: HEREDITARY ANGIOEDEMA
     Dosage: 1000 UNITS, OTHER (3 TIMES A WEEK)
     Route: 042
  2. CINRYZE [Suspect]
     Active Substance: HUMAN C1-ESTERASE INHIBITOR
     Indication: PROPHYLAXIS

REACTIONS (4)
  - Inappropriate schedule of drug administration [Not Recovered/Not Resolved]
  - Condition aggravated [Unknown]
  - Stress [Unknown]
  - Hereditary angioedema [Recovering/Resolving]
